FAERS Safety Report 7645339-1 (Version None)
Quarter: 2011Q3

REPORT INFORMATION
  Report Type: 
  Country: None (occurrence: None)
  Receive Date: 20110729
  Receipt Date: 20110722
  Transmission Date: 20111222
  Serious: Yes (Life-Threatening, Hospitalization, Other)
  Sender: FDA-Public Use
  Company Number: JP-PFIZER INC-2011090667

PATIENT
  Age: 87 Year
  Sex: Male
  Weight: 60 kg

DRUGS (3)
  1. DOPAMINE HCL [Concomitant]
     Indication: BLOOD PRESSURE DECREASED
     Dosage: 300 MG, 1X/DAY
     Route: 041
     Dates: start: 20110326, end: 20110414
  2. FAMOTIDINE [Concomitant]
     Indication: STRESS ULCER
     Dosage: 40 MG, UNK
     Route: 041
     Dates: start: 20110325, end: 20110420
  3. ZOSYN [Suspect]
     Indication: INFECTION
     Dosage: 4.5 G, 3X/DAY
     Route: 041
     Dates: start: 20110402, end: 20110414

REACTIONS (8)
  - NEUTROPHIL COUNT DECREASED [None]
  - ANAPHYLACTOID REACTION [None]
  - ASTHMA [None]
  - RASH [None]
  - DRUG ERUPTION [None]
  - OBSTRUCTIVE AIRWAYS DISORDER [None]
  - ERYTHEMA [None]
  - PANCYTOPENIA [None]
